FAERS Safety Report 17873422 (Version 1)
Quarter: 2020Q2

REPORT INFORMATION
  Report Type: Report from Study
  Country: AU (occurrence: AU)
  Receive Date: 20200609
  Receipt Date: 20200609
  Transmission Date: 20200714
  Serious: No
  Sender: FDA-Public Use
  Company Number: AU-TOLMAR, INC.-2019AU008047

PATIENT
  Age: 92 Year
  Sex: Male

DRUGS (1)
  1. ELIGARD [Suspect]
     Active Substance: LEUPROLIDE ACETATE
     Dosage: 22.5 MG, Q3MONTHS
     Route: 065
     Dates: start: 20190729

REACTIONS (5)
  - Fatigue [Unknown]
  - Hot flush [Unknown]
  - Pollakiuria [Unknown]
  - Injection site pain [Unknown]
  - Heart rate decreased [Unknown]

NARRATIVE: CASE EVENT DATE: 201910
